FAERS Safety Report 8585321-3 (Version None)
Quarter: 2012Q3

REPORT INFORMATION
  Report Type: 
  Country: None (occurrence: None)
  Receive Date: 20120810
  Receipt Date: 20120808
  Transmission Date: 20120928
  Serious: Yes (Other)
  Sender: FDA-Public Use
  Company Number: US-PFIZER INC-2012193916

PATIENT
  Age: 45 Year
  Sex: Female
  Weight: 66.395 kg

DRUGS (1)
  1. XANAX [Suspect]
     Indication: MUSCLE SPASMS
     Dosage: 0.5 MG, 1X/DAY
     Route: 048
     Dates: start: 20050101, end: 20100101

REACTIONS (7)
  - GENERAL PHYSICAL HEALTH DETERIORATION [None]
  - HYPOKINESIA [None]
  - GAIT DISTURBANCE [None]
  - BACK PAIN [None]
  - DRUG TOLERANCE [None]
  - IMPAIRED WORK ABILITY [None]
  - DRUG INEFFECTIVE [None]
